FAERS Safety Report 10283823 (Version 1)
Quarter: 2014Q3

REPORT INFORMATION
  Report Type: Spontaneous
  Country: US (occurrence: US)
  Receive Date: 20140708
  Receipt Date: 20140708
  Transmission Date: 20150326
  Serious: Yes (Other)
  Sender: FDA-Public Use
  Company Number: US-ASTRAZENECA-2014SE48101

PATIENT
  Age: 664 Month
  Sex: Female

DRUGS (1)
  1. ZOMIG [Suspect]
     Active Substance: ZOLMITRIPTAN
     Indication: MIGRAINE
     Route: 048

REACTIONS (3)
  - Bone cancer [Unknown]
  - Neoplasm malignant [Unknown]
  - Migraine [Unknown]

NARRATIVE: CASE EVENT DATE: 201304
